FAERS Safety Report 16508829 (Version 1)
Quarter: 2019Q3

REPORT INFORMATION
  Report Type: Spontaneous
  Country: US (occurrence: US)
  Receive Date: 20190701
  Receipt Date: 20190701
  Transmission Date: 20191004
  Serious: No
  Sender: FDA-Public Use
  Company Number: US-GALDERMA-US19008434

PATIENT
  Age: 26 Year
  Sex: Female

DRUGS (14)
  1. PROACTIV MD ADAPALENE ACNE TREATMENT [Suspect]
     Active Substance: ADAPALENE
     Indication: ACNE
     Dosage: 0.1%
     Route: 061
     Dates: start: 20170802, end: 201812
  2. PROACTIVPLUS SKIN SMOOTHING EXFOLIATOR [Concomitant]
     Active Substance: BENZOYL PEROXIDE
     Indication: ACNE
     Route: 061
     Dates: start: 20170802, end: 201812
  3. PROACTIV PLUS PORE TARGETING TREATMENT [Concomitant]
     Active Substance: BENZOYL PEROXIDE
     Indication: ACNE
     Route: 061
     Dates: start: 20170802, end: 201812
  4. PROACTIV PLUS PORE TARGETING TREATMENT [Concomitant]
     Active Substance: BENZOYL PEROXIDE
     Indication: SCAR
  5. PROACTIV MD DEEP CLEANSING FACE WASH [Concomitant]
     Active Substance: COSMETICS
     Indication: SCAR
  6. PROACTIV MD DAILY OIL CONTROL SPF 30 [Suspect]
     Active Substance: AVOBENZONE\OCTISALATE\OCTOCRYLENE
     Indication: SCAR
  7. PROACTIV MD DAILY OIL CONTROL SPF 30 [Suspect]
     Active Substance: AVOBENZONE\OCTISALATE\OCTOCRYLENE
     Indication: ACNE
     Route: 061
     Dates: start: 20170802, end: 201812
  8. PROACTIV MD BALANCING TONER [Concomitant]
     Active Substance: COSMETICS
     Indication: ACNE
     Route: 061
     Dates: start: 20170802, end: 201812
  9. PROACTIV PLUS COMPLEXION PERFECTING HYDRATOR [Concomitant]
     Active Substance: SALICYLIC ACID
     Indication: ACNE
     Route: 061
     Dates: start: 20170802, end: 201812
  10. PROACTIV PLUS COMPLEXION PERFECTING HYDRATOR [Concomitant]
     Active Substance: SALICYLIC ACID
     Indication: SCAR
  11. PROACTIV MD DEEP CLEANSING FACE WASH [Concomitant]
     Active Substance: COSMETICS
     Indication: ACNE
     Route: 061
     Dates: start: 20170802, end: 201812
  12. PROACTIV MD BALANCING TONER [Concomitant]
     Active Substance: COSMETICS
     Indication: SCAR
  13. PROACTIV MD ADAPALENE ACNE TREATMENT [Suspect]
     Active Substance: ADAPALENE
     Indication: SCAR
  14. PROACTIVPLUS SKIN SMOOTHING EXFOLIATOR [Concomitant]
     Active Substance: BENZOYL PEROXIDE
     Indication: SCAR

REACTIONS (6)
  - Underdose [Recovered/Resolved]
  - Pruritus [Not Recovered/Not Resolved]
  - Inappropriate schedule of product administration [Recovered/Resolved]
  - Drug ineffective [Not Recovered/Not Resolved]
  - Dry skin [Not Recovered/Not Resolved]
  - Acne [Not Recovered/Not Resolved]

NARRATIVE: CASE EVENT DATE: 201708
